FAERS Safety Report 6597875-7 (Version None)
Quarter: 2010Q1

REPORT INFORMATION
  Report Type: 
  Country: None (occurrence: None)
  Receive Date: 20100223
  Receipt Date: 20091203
  Transmission Date: 20100710
  Serious: No
  Sender: FDA-Public Use
  Company Number: US-ALLERGAN-0916752US

PATIENT
  Age: 37 Year
  Sex: Female

DRUGS (2)
  1. BOTOX COSMETIC [Suspect]
     Indication: SKIN WRINKLING
     Dosage: 42 UNITS, SINGLE
     Route: 030
     Dates: start: 20091203, end: 20091203
  2. BIRTH CONTROL PILL [Concomitant]
     Dosage: UNK
     Route: 048

REACTIONS (2)
  - HYPOAESTHESIA FACIAL [None]
  - INJECTION SITE ANAESTHESIA [None]
